FAERS Safety Report 7277683-4 (Version None)
Quarter: 2011Q1

REPORT INFORMATION
  Report Type: 
  Country: None (occurrence: None)
  Receive Date: 20110207
  Receipt Date: 20110131
  Transmission Date: 20110831
  Serious: No
  Sender: FDA-Public Use
  Company Number: US-PFIZER INC-2010150671

PATIENT
  Sex: Female

DRUGS (5)
  1. GEODON [Suspect]
     Indication: BIPOLAR DISORDER
     Dosage: 80 MG, 2X/DAY
     Route: 048
     Dates: start: 20101015, end: 20101101
  2. CELEXA [Concomitant]
     Indication: DEPRESSION
     Dosage: 40 MG, 1X/DAY
     Dates: start: 20101115
  3. HYDROCHLOROTHIAZIDE [Concomitant]
     Indication: BLOOD PRESSURE
     Dosage: 25 MG, 1X/DAY
     Dates: start: 20080101
  4. CELEXA [Concomitant]
     Indication: ANXIETY
  5. ASPIRIN [Concomitant]
     Dosage: 81 MG, 1X/DAY
     Dates: start: 20080101

REACTIONS (1)
  - OEDEMA PERIPHERAL [None]
